FAERS Safety Report 5308995-9 (Version None)
Quarter: 2007Q2

REPORT INFORMATION
  Report Type: 
  Country: None (occurrence: None)
  Receive Date: 20070426
  Receipt Date: 20070414
  Transmission Date: 20071010
  Serious: Yes (Other)
  Sender: FDA-Public Use
  Company Number: US-PFIZER INC-2007030535

PATIENT
  Sex: Female
  Weight: 71.2 kg

DRUGS (11)
  1. LYRICA [Suspect]
     Indication: DIABETIC NEUROPATHY
     Dates: start: 20070101
  2. INSPRA [Concomitant]
  3. PLAVIX [Concomitant]
  4. ASPIRIN [Concomitant]
  5. LASIX [Concomitant]
  6. VASOTEC [Concomitant]
  7. ZOCOR [Concomitant]
  8. NITRGLYCERIN TRANSDERMAL SYSTEM [Concomitant]
  9. VITAMINS [Concomitant]
  10. VITAMIN K [Concomitant]
  11. GLYBURIDE [Concomitant]
     Indication: DIABETES MELLITUS NON-INSULIN-DEPENDENT

REACTIONS (4)
  - BLOOD GLUCOSE INCREASED [None]
  - HYPOAESTHESIA [None]
  - INSOMNIA [None]
  - PAIN [None]
